FAERS Safety Report 4492330-2 (Version None)
Quarter: 2004Q3

REPORT INFORMATION
  Report Type: 
  Country: None (occurrence: None)
  Receive Date: 20040921
  Receipt Date: 20040115
  Transmission Date: 20050211
  Serious: Yes (Death)
  Sender: FDA-Public Use
  Company Number: 163-20785-04010362

PATIENT
  Age: 66 Year
  Sex: Female

DRUGS (1)
  1. THALOMID [Suspect]
     Indication: OVARIAN CANCER
     Dosage: 100 MG, ORAL
     Route: 048
     Dates: start: 20021025

REACTIONS (1)
  - DEATH [None]
